FAERS Safety Report 8100691 (Version 4)
Quarter: 2014Q2

REPORT INFORMATION
  Report Type: Spontaneous
  Country: US (occurrence: US)
  Receive Date: 20110822
  Receipt Date: 20140421
  Transmission Date: 20141212
  Serious: Yes (Hospitalization)
  Sender: FDA-Public Use
  Company Number: US-BAYER-2011-074703

PATIENT
  Age: 21 Year
  Sex: Female
  Weight: 94 kg

DRUGS (1)
  1. YASMIN [Suspect]
     Dosage: UNK
     Dates: start: 2006, end: 2009

REACTIONS (4)
  - Gallbladder injury [None]
  - Cholecystitis chronic [None]
  - Injury [None]
  - Pain [None]
